FAERS Safety Report 12614037 (Version 6)
Quarter: 2023Q2

REPORT INFORMATION
  Report Type: Spontaneous
  Country: US (occurrence: US)
  Receive Date: 20160802
  Receipt Date: 20230410
  Transmission Date: 20230722
  Serious: Yes (Other)
  Sender: FDA-Public Use
  Company Number: US-PFIZER INC-2016365525

PATIENT
  Age: 61 Year
  Sex: Female
  Weight: 97.687 kg

DRUGS (1)
  1. XELJANZ [Suspect]
     Active Substance: TOFACITINIB CITRATE
     Indication: Rheumatoid arthritis
     Dosage: 5 MG

REACTIONS (5)
  - Injury [Unknown]
  - Fatigue [Unknown]
  - Somnolence [Unknown]
  - Cystitis [Unknown]
  - Condition aggravated [Unknown]
